FAERS Safety Report 16655750 (Version 6)
Quarter: 2019Q4

REPORT INFORMATION
  Report Type: Spontaneous
  Country: RO (occurrence: RO)
  Receive Date: 20190801
  Receipt Date: 20191126
  Transmission Date: 20200122
  Serious: Yes (Other)
  Sender: FDA-Public Use
  Company Number: RO-ASTELLAS-2019US030632

PATIENT
  Age: 78 Year
  Sex: Female

DRUGS (10)
  1. SIMVACARD [Concomitant]
     Active Substance: SIMVASTATIN
     Dosage: UNK UNK, ONCE DAILY (IN NIGHT)
     Route: 048
  2. OMNIC TOCAS [Suspect]
     Active Substance: TAMSULOSIN HYDROCHLORIDE
     Dosage: 1 DF, ONCE DAILY (AT LUNCH TIME)
     Route: 048
     Dates: start: 20190731
  3. OMNIC TOCAS [Suspect]
     Active Substance: TAMSULOSIN HYDROCHLORIDE
     Indication: DYSURIA
     Dosage: 1 DF, ONCE DAILY (AT NIGHT)
     Route: 048
     Dates: start: 201810, end: 20190720
  4. TERTENSIF [Concomitant]
     Active Substance: INDAPAMIDE
     Indication: PRODUCT USED FOR UNKNOWN INDICATION
     Dosage: UNK UNK, ONCE DAILY (IN MORNING)
     Route: 048
  5. ASPENTER [Concomitant]
     Active Substance: ASPIRIN
     Indication: PRODUCT USED FOR UNKNOWN INDICATION
     Dosage: UNK UNK, ONCE DAILY
     Route: 048
  6. AERIUS                             /01009701/ [Concomitant]
     Active Substance: EBASTINE
     Indication: PRODUCT USED FOR UNKNOWN INDICATION
     Dosage: UNK UNK, ONCE DAILY (IN NIGHT)
     Route: 048
  7. VESICARE [Suspect]
     Active Substance: SOLIFENACIN SUCCINATE
     Indication: DYSURIA
     Dosage: 1 DF, ONCE DAILY (AT NIGHT)
     Route: 048
     Dates: start: 20190721, end: 20190730
  8. SIMVACARD [Concomitant]
     Active Substance: SIMVASTATIN
     Indication: PRODUCT USED FOR UNKNOWN INDICATION
     Route: 065
  9. SERMION                            /00396401/ [Concomitant]
     Active Substance: NICERGOLINE
     Indication: PRODUCT USED FOR UNKNOWN INDICATION
     Dosage: 30 MG, ONCE DAILY  (IN MORNING)
     Route: 048
  10. BETASERC                           /00141801/ [Concomitant]
     Active Substance: BETAHISTINE
     Indication: PRODUCT USED FOR UNKNOWN INDICATION
     Dosage: UNK UNK, ONCE DAILY (IN MORNING)
     Route: 048

REACTIONS (4)
  - Urinary retention [Recovered/Resolved]
  - Product use in unapproved indication [Unknown]
  - Product use issue [Unknown]
  - Urinary tract obstruction [Recovered/Resolved]

NARRATIVE: CASE EVENT DATE: 201810
